FAERS Safety Report 7933908-0 (Version None)
Quarter: 2011Q4

REPORT INFORMATION
  Report Type: 
  Country: None (occurrence: None)
  Receive Date: 20111122
  Receipt Date: 20111110
  Transmission Date: 20120403
  Serious: Yes (Other)
  Sender: FDA-Public Use
  Company Number: US-US-EMD SERONO, INC.-7095525

PATIENT
  Sex: Female

DRUGS (1)
  1. REBIF [Suspect]
     Indication: MULTIPLE SCLEROSIS
     Route: 058
     Dates: start: 20110810

REACTIONS (7)
  - UNEVALUABLE EVENT [None]
  - INJECTION SITE DISCOLOURATION [None]
  - ARTHRALGIA [None]
  - DEPRESSION [None]
  - MUSCULOSKELETAL STIFFNESS [None]
  - HEADACHE [None]
  - FATIGUE [None]
